FAERS Safety Report 9122647 (Version 1)
Quarter: 2013Q1

REPORT INFORMATION
  Report Type: Spontaneous
  Country: US (occurrence: None)
  Receive Date: 20130130
  Receipt Date: 20130130
  Transmission Date: 20140127
  Serious: Yes (Death)
  Sender: FDA-Public Use
  Company Number: B059610A

PATIENT
  Age: 48 Year
  Sex: Female

DRUGS (10)
  1. PROPRANOLOL HYDROCHLORIDE [Suspect]
     Route: 048
  2. CLONAZEPAM [Suspect]
     Route: 048
  3. HYDROXYZINE [Suspect]
     Route: 048
  4. RISPERIDONE [Suspect]
     Route: 048
  5. CITALOPRAM [Suspect]
     Route: 048
  6. ONDANSETRON HYDROCHLORIDE [Suspect]
     Route: 048
  7. OXYCODONE [Suspect]
     Route: 048
  8. TRAZODONE [Suspect]
     Route: 048
  9. TEMAZEPAM [Suspect]
     Route: 048
  10. BENZTROPINE [Suspect]
     Route: 048

REACTIONS (2)
  - Completed suicide [None]
  - Cardio-respiratory arrest [None]
